FAERS Safety Report 7335136-9 (Version None)
Quarter: 2011Q1

REPORT INFORMATION
  Report Type: 
  Country: None (occurrence: None)
  Receive Date: 20110224
  Receipt Date: 20100913
  Transmission Date: 20110831
  Serious: Yes (Life-Threatening, Hospitalization)
  Sender: FDA-Public Use
  Company Number: 233940

PATIENT
  Age: 17 Month
  Sex: Male
  Weight: 9.2 kg

DRUGS (11)
  1. LEVOTHYROXINE SODIUM [Concomitant]
  2. NUTROPIN AQ [Suspect]
     Indication: GROWTH RETARDATION
     Dosage: 0.44 MG, 7/WEEK, SUBCUTANEOUS
     Route: 058
     Dates: start: 20061019, end: 20061212
  3. NUTROPIN AQ [Suspect]
     Indication: CONGENITAL CYSTIC KIDNEY DISEASE
     Dosage: 0.44 MG, 7/WEEK, SUBCUTANEOUS
     Route: 058
     Dates: start: 20061019, end: 20061212
  4. FERINSOL (FERROUS SULFATE) [Concomitant]
  5. MUPIROCIN [Concomitant]
  6. NIFEDIPINE [Concomitant]
  7. NA PHOSPHATE (SODIUM PHOSPHATE, DIBASIC) [Concomitant]
  8. EPOGEN [Concomitant]
  9. REGLAN [Concomitant]
  10. SODIUM CHLORIDE 0.9% [Concomitant]
  11. CACO3 (CALCIUM CARBONATE) [Concomitant]

REACTIONS (2)
  - HYPERTENSION [None]
  - BENIGN INTRACRANIAL HYPERTENSION [None]
